FAERS Safety Report 18826180 (Version 1)
Quarter: 2021Q1

REPORT INFORMATION
  Report Type: Spontaneous
  Country: US (occurrence: US)
  Receive Date: 20210202
  Receipt Date: 20210202
  Transmission Date: 20210419
  Serious: No
  Sender: FDA-Public Use
  Company Number: US-THE RITEDOSE CORPORATION-2020RIT000094

PATIENT

DRUGS (3)
  1. ALBUTEROL SULFATE INHALATION SOLUTION [Suspect]
     Active Substance: ALBUTEROL SULFATE
     Indication: PRODUCT USED FOR UNKNOWN INDICATION
     Dosage: UNK
     Route: 055
     Dates: start: 20200402
  2. BENZONATATE. [Concomitant]
     Active Substance: BENZONATATE
     Indication: ILLNESS
     Dosage: 200 MG, TID
     Route: 048
     Dates: start: 20200402
  3. CEFUROXIME. [Concomitant]
     Active Substance: CEFUROXIME
     Indication: ILLNESS
     Dosage: 500 MG, BID
     Route: 048
     Dates: start: 20200402

REACTIONS (8)
  - Chills [Unknown]
  - Cough [Unknown]
  - Pyrexia [Unknown]
  - Chest pain [Unknown]
  - Gait disturbance [Unknown]
  - Burning sensation [Unknown]
  - Headache [Unknown]
  - Dry mouth [Unknown]

NARRATIVE: CASE EVENT DATE: 20200402
